FAERS Safety Report 6802467-8 (Version None)
Quarter: 2010Q2

REPORT INFORMATION
  Report Type: 
  Country: None (occurrence: None)
  Receive Date: 20100628
  Receipt Date: 20100617
  Transmission Date: 20101027
  Serious: No
  Sender: FDA-Public Use
  Company Number: 2008BI021752

PATIENT
  Age: 55 Year
  Sex: Female

DRUGS (2)
  1. TYSABRI [Suspect]
     Indication: MULTIPLE SCLEROSIS
     Route: 042
     Dates: start: 20080624, end: 20100608
  2. BENADRYL [Concomitant]
     Indication: PREMEDICATION
     Route: 048
     Dates: start: 20100608

REACTIONS (8)
  - ARTHRALGIA [None]
  - INFLUENZA LIKE ILLNESS [None]
  - POOR VENOUS ACCESS [None]
  - PRURITUS [None]
  - PRURITUS ALLERGIC [None]
  - RASH ERYTHEMATOUS [None]
  - TOOTH FRACTURE [None]
  - TOOTH INFECTION [None]
